FAERS Safety Report 13010865 (Version 2)
Quarter: 2017Q1

REPORT INFORMATION
  Report Type: Spontaneous
  Country: JP (occurrence: JP)
  Receive Date: 20161208
  Receipt Date: 20170217
  Transmission Date: 20170428
  Serious: Yes (Other)
  Sender: FDA-Public Use
  Company Number: JP-MYLANLABS-2016M1053179

PATIENT

DRUGS (3)
  1. PARAPLATIN [Suspect]
     Active Substance: CARBOPLATIN
     Indication: SMALL CELL LUNG CANCER EXTENSIVE STAGE
     Dosage: AUC 5, EVERY 3 WEEKS
     Route: 065
  2. PEGFILGRASTIM [Suspect]
     Active Substance: PEGFILGRASTIM
     Indication: PROPHYLAXIS
     Route: 065
  3. ETOPOSIDE. [Suspect]
     Active Substance: ETOPOSIDE
     Indication: SMALL CELL LUNG CANCER EXTENSIVE STAGE
     Dosage: 80 MG/M2 (ON DAYS 1, 2 AND 3), EVERY 3 WEEKS
     Route: 065

REACTIONS (3)
  - Neutropenia [Unknown]
  - Interstitial lung disease [Recovering/Resolving]
  - Thrombocytopenia [Unknown]
